FAERS Safety Report 8053367-X (Version None)
Quarter: 2012Q1

REPORT INFORMATION
  Report Type: 
  Country: None (occurrence: None)
  Receive Date: 20120118
  Receipt Date: 20120116
  Transmission Date: 20120608
  Serious: Yes (Other)
  Sender: FDA-Public Use
  Company Number: DE-BAYER-2011-117620

PATIENT
  Age: 72 Year
  Sex: Male
  Weight: 68 kg

DRUGS (2)
  1. NEXAVAR [Suspect]
     Indication: METASTASES TO LUNG
     Dosage: 600 MG, UNK
     Dates: start: 20070801, end: 20071101
  2. NEXAVAR [Suspect]
     Indication: RENAL CELL CARCINOMA
     Dosage: 800 MG, UNK
     Dates: start: 20061201, end: 20070801

REACTIONS (6)
  - HYPERKERATOSIS PALMARIS AND PLANTARIS [None]
  - HYPERTENSION [None]
  - ASTHENIA [None]
  - RASH [None]
  - LIVER DISORDER [None]
  - FATIGUE [None]
